FAERS Safety Report 18331285 (Version 1)
Quarter: 2020Q3

REPORT INFORMATION
  Report Type: Spontaneous
  Country: IT (occurrence: IT)
  Receive Date: 20200930
  Receipt Date: 20200930
  Transmission Date: 20201103
  Serious: Yes (Death, Other)
  Sender: FDA-Public Use
  Company Number: IT-SA-2020SA267834

PATIENT

DRUGS (1)
  1. ENOXAPARIN SODIUM. [Suspect]
     Active Substance: ENOXAPARIN SODIUM
     Dosage: 8000 MG/KG, QD

REACTIONS (2)
  - Intra-abdominal haematoma [Fatal]
  - Anaemia [Fatal]

NARRATIVE: CASE EVENT DATE: 20200906
